FAERS Safety Report 7796972-8 (Version None)
Quarter: 2011Q4

REPORT INFORMATION
  Report Type: 
  Country: None (occurrence: None)
  Receive Date: 20111005
  Receipt Date: 20111005
  Transmission Date: 20120403
  Serious: Yes (Hospitalization)
  Sender: FDA-Public Use
  Company Number: None

PATIENT
  Age: 63 Year
  Sex: Male
  Weight: 76 kg

DRUGS (8)
  1. CLARITIN [Concomitant]
     Route: 048
  2. ASCORBIC ACID [Concomitant]
     Route: 048
  3. ULTRAM [Concomitant]
     Route: 048
  4. MIRALAX [Concomitant]
     Route: 048
  5. ENOXAPARIN [Concomitant]
     Route: 058
  6. CUBICIN [Suspect]
     Dosage: 550 MG
     Route: 042
     Dates: start: 20110906, end: 20110907
  7. CHOLECALCIFEROL [Concomitant]
     Route: 048
  8. KENALOG- 0.1 % EX CREAM [Concomitant]
     Route: 061

REACTIONS (1)
  - EOSINOPHILIC PNEUMONIA [None]
